FAERS Safety Report 20823980 (Version 1)
Quarter: 2022Q2

REPORT INFORMATION
  Report Type: Spontaneous
  Country: CN (occurrence: CN)
  Receive Date: 20220513
  Receipt Date: 20220513
  Transmission Date: 20220721
  Serious: Yes (Other)
  Sender: FDA-Public Use
  Company Number: CN-NOVARTISPH-NVSC2022CN108813

PATIENT
  Age: 51 Year
  Sex: Female
  Weight: 55 kg

DRUGS (2)
  1. ROSUVASTATIN CALCIUM [Suspect]
     Active Substance: ROSUVASTATIN CALCIUM
     Indication: Hyperlipidaemia
     Dosage: 5 MG, QD (TABLETS)
     Route: 048
     Dates: start: 20220331, end: 20220408
  2. TAI NUO [Concomitant]
     Indication: Pain
     Dosage: UNK (1 TABLET)
     Route: 065

REACTIONS (2)
  - Pyrexia [Recovered/Resolved]
  - Myalgia [Recovered/Resolved]

NARRATIVE: CASE EVENT DATE: 20220407
